FAERS Safety Report 14376307 (Version 1)
Quarter: 2018Q1

REPORT INFORMATION
  Report Type: Spontaneous
  Country: NL (occurrence: NL)
  Receive Date: 20180111
  Receipt Date: 20180111
  Transmission Date: 20180509
  Serious: Yes (Life-Threatening)
  Sender: FDA-Public Use
  Company Number: NL-TEVA-2018-NL-845487

PATIENT
  Age: 64 Year
  Sex: Female

DRUGS (6)
  1. FOSINOPRIL TABLET, 20 MG (MILLIGRAM) [Suspect]
     Active Substance: FOSINOPRIL
     Indication: HYPERTENSION
     Dosage: ONCE DAILY 20 MG
     Route: 065
     Dates: start: 20171011, end: 20171012
  2. HYDROXOCOBALAMINE 500UG/ML [Concomitant]
     Dosage: USAGE KNOWN
     Dates: start: 20170614
  3. GREPID 75MG [Concomitant]
     Dosage: ONCE DAILY ONE
     Dates: start: 20171005
  4. NIFEDIPINE TABLET MGA 30MG [Concomitant]
     Active Substance: NIFEDIPINE
     Dosage: ONCE DAILY ONE
     Dates: start: 20100306
  5. CARBAMAZEPINE TABLET 100MG [Concomitant]
     Dosage: 5 TIMES DAILY ONE
     Dates: start: 20170710
  6. CARBAMAZEPINE 200MG [Concomitant]
     Active Substance: CARBAMAZEPINE
     Dosage: 5 TIMES DAILY ONE
     Dates: start: 20170523

REACTIONS (1)
  - Lacunar infarction [Recovering/Resolving]

NARRATIVE: CASE EVENT DATE: 20171011
